FAERS Safety Report 12236792 (Version 2)
Quarter: 2017Q2

REPORT INFORMATION
  Report Type: Spontaneous
  Country: IT (occurrence: IT)
  Receive Date: 20160405
  Receipt Date: 20170426
  Transmission Date: 20170830
  Serious: Yes (Hospitalization, Other)
  Sender: FDA-Public Use
  Company Number: IT-AUROBINDO-AUR-APL-2016-02809

PATIENT
  Age: 82 Year
  Sex: Female

DRUGS (11)
  1. CLARITHROMYCIN. [Interacting]
     Active Substance: CLARITHROMYCIN
     Indication: PYREXIA
  2. OMEPRAZOLE. [Concomitant]
     Active Substance: OMEPRAZOLE
     Indication: PRODUCT USED FOR UNKNOWN INDICATION
     Dosage: 20 MG, UNK
     Route: 065
  3. AMOXICILLIN+CLAVULANIC ACID [Suspect]
     Active Substance: AMOXICILLIN\CLAVULANIC ACID
     Indication: COUGH
     Route: 065
  4. ACETYLSALICYLIC ACID [Concomitant]
     Active Substance: ASPIRIN
     Indication: PRODUCT USED FOR UNKNOWN INDICATION
     Dosage: 100 MG, UNK
     Route: 065
  5. AKTIL                              /00852501/ [Concomitant]
     Active Substance: AMOXICILLIN\CLAVULANIC ACID
     Indication: PYREXIA
     Dosage: UNK
  6. CLARITHROMYCIN. [Interacting]
     Active Substance: CLARITHROMYCIN
     Indication: COUGH
     Route: 065
  7. LEVOTHYROXINE. [Concomitant]
     Active Substance: LEVOTHYROXINE
     Indication: PRODUCT USED FOR UNKNOWN INDICATION
     Dosage: 75 MCG, UNK
     Route: 065
  8. METOPROLOL. [Concomitant]
     Active Substance: METOPROLOL
     Indication: PRODUCT USED FOR UNKNOWN INDICATION
     Dosage: 100 MG ? CP?2
     Route: 065
  9. CLOPIDOGREL [Concomitant]
     Active Substance: CLOPIDOGREL BISULFATE
     Indication: PRODUCT USED FOR UNKNOWN INDICATION
     Dosage: 75 MG, UNK
  10. ATORVASTATIN 80 MG [Suspect]
     Active Substance: ATORVASTATIN
     Indication: PRODUCT USED FOR UNKNOWN INDICATION
     Route: 065
  11. AKTIL                              /00852501/ [Concomitant]
     Active Substance: AMOXICILLIN\CLAVULANIC ACID
     Indication: COUGH

REACTIONS (19)
  - Leukocytosis [Recovered/Resolved]
  - Hypokalaemia [Recovered/Resolved]
  - Condition aggravated [Recovered/Resolved]
  - Asthenia [Recovered/Resolved]
  - Hyporeflexia [Recovered/Resolved]
  - Paralysis [Recovering/Resolving]
  - Myopathy [Unknown]
  - Renal failure [Unknown]
  - Dysstasia [Recovered/Resolved]
  - Alanine aminotransferase increased [Unknown]
  - Aspartate aminotransferase increased [Unknown]
  - Normochromic normocytic anaemia [Unknown]
  - Fungal infection [Recovered/Resolved]
  - Gait disturbance [Recovered/Resolved]
  - Drug interaction [Unknown]
  - Transaminases increased [Recovered/Resolved]
  - Neutrophilia [Unknown]
  - Rhabdomyolysis [Recovered/Resolved]
  - Normochromic normocytic anaemia [Recovered/Resolved]
